FAERS Safety Report 6964099-0 (Version None)
Quarter: 2010Q3

REPORT INFORMATION
  Report Type: 
  Country: None (occurrence: None)
  Receive Date: 20100902
  Receipt Date: 20100823
  Transmission Date: 20110219
  Serious: Yes (Death, Hospitalization)
  Sender: FDA-Public Use
  Company Number: US-MYLANLABS-2010S1015258

PATIENT
  Age: 71 Year
  Sex: Female

DRUGS (2)
  1. AMLODIPINE [Suspect]
     Indication: OVERDOSE
     Dosage: 27 TABLETS OF 5MG AMLODIPINE.
     Route: 048
  2. SOYA OIL [Suspect]
     Indication: OVERDOSE
     Dosage: GIVEN OVER 4.5 HOURS
     Route: 041

REACTIONS (5)
  - ACIDOSIS [None]
  - HYPOTENSION [None]
  - OLIGURIA [None]
  - OVERDOSE [None]
  - RESPIRATORY FAILURE [None]
